FAERS Safety Report 24540116 (Version 1)
Quarter: 2024Q4

REPORT INFORMATION
  Report Type: Spontaneous
  Country: PL (occurrence: PL)
  Receive Date: 20241023
  Receipt Date: 20241023
  Transmission Date: 20250115
  Serious: Yes (Other)
  Sender: NOVARTIS
  Company Number: PL-002147023-NVSC2024PL188067

PATIENT
  Age: 53 Year
  Sex: Male

DRUGS (2)
  1. IMATINIB [Suspect]
     Active Substance: IMATINIB
     Indication: Chronic myeloid leukaemia
     Dosage: 400 MG, QD
     Route: 048
     Dates: start: 2010
  2. IMATINIB [Suspect]
     Active Substance: IMATINIB
     Dosage: 100 MG, QD
     Route: 048
     Dates: start: 202205

REACTIONS (7)
  - Granulomatosis with polyangiitis [Unknown]
  - Exercise tolerance decreased [Unknown]
  - Weight decreased [Unknown]
  - Purpura [Unknown]
  - Henoch-Schonlein purpura [Unknown]
  - Normocytic anaemia [Unknown]
  - Thrombocytosis [Unknown]

NARRATIVE: CASE EVENT DATE: 20220101
